FAERS Safety Report 6384754-3 (Version None)
Quarter: 2009Q4

REPORT INFORMATION
  Report Type: 
  Country: None (occurrence: None)
  Receive Date: 20091001
  Receipt Date: 20090915
  Transmission Date: 20100525
  Serious: Yes (Hospitalization, Other)
  Sender: FDA-Public Use
  Company Number: ES-ELI_LILLY_AND_COMPANY-ES200908006448

PATIENT
  Age: 78 Year
  Sex: Female

DRUGS (5)
  1. FORTEO [Suspect]
     Indication: OSTEOPOROSIS
     Dosage: 20 UG, DAILY (1/D)
     Route: 058
     Dates: start: 20080827, end: 20090601
  2. IRON [Concomitant]
  3. FOLIC ACID [Concomitant]
  4. PARACETAMOL [Concomitant]
  5. OMEPRAZOLE [Concomitant]
     Indication: PROPHYLAXIS

REACTIONS (6)
  - DECUBITUS ULCER [None]
  - FALL [None]
  - FEMUR FRACTURE [None]
  - HYPOAESTHESIA [None]
  - MITRAL VALVE DISEASE [None]
  - PYREXIA [None]
